FAERS Safety Report 9742625 (Version 1)
Quarter: 2013Q4

REPORT INFORMATION
  Report Type: Spontaneous
  Country: US (occurrence: US)
  Receive Date: 20131210
  Receipt Date: 20131210
  Transmission Date: 20140711
  Serious: Yes (Hospitalization)
  Sender: FDA-Public Use
  Company Number: US-GILEAD-2009-0024822

PATIENT
  Age: 74 Year
  Sex: Female

DRUGS (14)
  1. LETAIRIS [Suspect]
     Indication: PULMONARY ARTERIAL HYPERTENSION
     Route: 048
     Dates: start: 20080513, end: 20090928
  2. REVATIO [Suspect]
     Route: 048
  3. CYMBALTA [Concomitant]
  4. ZOCOR [Concomitant]
  5. XANAX [Concomitant]
  6. LASIX [Concomitant]
  7. GLYBURIDE [Concomitant]
  8. WELLBUTRIN TAB XL [Concomitant]
  9. SYMBICORT AER [Concomitant]
  10. VITAMIN B-12 [Concomitant]
  11. SPIRIVA [Concomitant]
  12. ASA LOW STR [Concomitant]
  13. CARTIA XT [Concomitant]
  14. XOPENEX NEB [Concomitant]

REACTIONS (1)
  - Oedema [Recovering/Resolving]
